FAERS Safety Report 21485479 (Version 1)
Quarter: 2022Q4

REPORT INFORMATION
  Report Type: Spontaneous
  Country: US (occurrence: US)
  Receive Date: 20221020
  Receipt Date: 20221020
  Transmission Date: 20230112
  Serious: Yes (Hospitalization)
  Sender: FDA-Public Use
  Company Number: US-MYLANLABS-2022M1115374

PATIENT
  Age: 46 Year
  Sex: Female

DRUGS (4)
  1. FLUCONAZOLE [Suspect]
     Active Substance: FLUCONAZOLE
     Indication: Chest wall mass
     Dosage: 400 MILLIGRAM, QD
     Route: 048
     Dates: start: 2022
  2. FLUCONAZOLE [Suspect]
     Active Substance: FLUCONAZOLE
     Indication: Cryptococcosis
  3. FINGOLIMOD [Suspect]
     Active Substance: FINGOLIMOD
     Indication: Relapsing-remitting multiple sclerosis
     Dosage: UNK
     Route: 065
     Dates: start: 2010
  4. DEXAMETHASONE [Suspect]
     Active Substance: DEXAMETHASONE
     Indication: COVID-19 pneumonia
     Dosage: UNK, ONCE, SINGLE DOSE
     Route: 065
     Dates: start: 2022

REACTIONS (6)
  - Chest wall mass [Recovering/Resolving]
  - Pathological fracture [Recovering/Resolving]
  - Cryptococcosis [Recovering/Resolving]
  - Osteomyelitis [Recovering/Resolving]
  - Pruritus [Unknown]
  - Off label use [Unknown]

NARRATIVE: CASE EVENT DATE: 20220101
